FAERS Safety Report 6332230-6 (Version None)
Quarter: 2009Q3

REPORT INFORMATION
  Report Type: 
  Country: None (occurrence: None)
  Receive Date: 20090828
  Receipt Date: 20090818
  Transmission Date: 20100115
  Serious: Yes (Other)
  Sender: FDA-Public Use
  Company Number: CO-BAYER-200920224LA

PATIENT
  Age: 48 Year
  Sex: Male
  Weight: 74 kg

DRUGS (2)
  1. CIPRO XR [Suspect]
     Indication: PROPHYLAXIS URINARY TRACT INFECTION
     Route: 048
     Dates: start: 20090728, end: 20090731
  2. RUFLAN [Concomitant]
     Indication: DRUG USE FOR UNKNOWN INDICATION

REACTIONS (1)
  - URETHRAL HAEMORRHAGE [None]
